FAERS Safety Report 6701288-4 (Version None)
Quarter: 2010Q2

REPORT INFORMATION
  Report Type: 
  Country: None (occurrence: None)
  Receive Date: 20100427
  Receipt Date: 20100225
  Transmission Date: 20101027
  Serious: Yes (Hospitalization)
  Sender: FDA-Public Use
  Company Number: 2010040047

PATIENT
  Age: 74 Year
  Sex: Female

DRUGS (12)
  1. TOREM (TORASEMIDE [Suspect]
     Indication: RENAL FAILURE CHRONIC
     Dosage: 10 MG (10 MG 1 IN 1D), ORAL
     Route: 048
     Dates: start: 20090601
  2. LARIAM [Suspect]
     Indication: LEUKOENCEPHALOPATHY
     Dosage: 35.7143 MG (250 MG, 1 IN 1 WK), ORAL
     Route: 048
     Dates: start: 20091028, end: 20091231
  3. MIRTAZAPINE [Suspect]
     Indication: ENCEPHALOPATHY
     Dosage: 5 MG (5MG, 1 IN 1 D), ORAL
     Route: 048
     Dates: start: 20091028, end: 20100105
  4. PANTOPRAZOLE SODIUM [Suspect]
     Indication: REFLUX OESOPHAGITIS
     Dosage: 40 MG (40 MG, 1 IN 1 D), ORAL
     Dates: start: 20090601
  5. ACETYSALICYLIC ACID (ACETYSALICYLIC ACID) [Suspect]
     Indication: CORONARY ARTERY DISEASE
     Dosage: 100 MG (100 MG, 1 IN 1 D), ORAL
     Route: 048
     Dates: start: 20090901
  6. CLOPIDOGREL [Suspect]
     Indication: CORONARY ARTERY DISEASE
     Dosage: 75 MG (75 MG, 1 IN 1 D), ORAL
     Route: 048
     Dates: start: 20090901
  7. PREDNISOLONE [Concomitant]
  8. DIGITOXIN INJ [Concomitant]
  9. IRBESARTAN [Concomitant]
  10. CALCILAC KT (CALCIUM CARBONATE) [Concomitant]
  11. SPIRONOLACTONE [Concomitant]
  12. ACTRAPID (INSULIN) [Concomitant]

REACTIONS (6)
  - ANISOCYTOSIS [None]
  - ENDOCARDITIS [None]
  - HAEMOGLOBIN DECREASED [None]
  - PANCYTOPENIA [None]
  - POIKILOCYTOSIS [None]
  - PULMONARY CONGESTION [None]
